FAERS Safety Report 22644122 (Version 1)
Quarter: 2023Q2

REPORT INFORMATION
  Report Type: Spontaneous
  Country: JP (occurrence: JP)
  Receive Date: 20230627
  Receipt Date: 20230627
  Transmission Date: 20230721
  Serious: Yes (Other)
  Sender: FDA-Public Use
  Company Number: JP-BAYER-2023A080076

PATIENT
  Age: 44 Year

DRUGS (1)
  1. EYLEA [Suspect]
     Active Substance: AFLIBERCEPT
     Indication: Diabetic retinal oedema
     Dosage: 6 TIMES,  SOLUTION FOR INJECTION IN PRE-FILLED SYRINGE, 40 MG/ML
     Route: 031

REACTIONS (3)
  - Visual acuity reduced [Recovered/Resolved]
  - Retinal artery occlusion [Recovered/Resolved]
  - Intraocular pressure increased [Unknown]
